FAERS Safety Report 9575469 (Version 1)
Quarter: 2013Q4

REPORT INFORMATION
  Report Type: Spontaneous
  Country: US (occurrence: US)
  Receive Date: 20131001
  Receipt Date: 20131001
  Transmission Date: 20140711
  Serious: No
  Sender: FDA-Public Use
  Company Number: US-AMGEN-USASP2012083631

PATIENT
  Age: 74 Year
  Sex: Female

DRUGS (5)
  1. ENBREL [Suspect]
     Indication: RHEUMATOID ARTHRITIS
     Dosage: 50 MG, QWK
     Route: 058
     Dates: start: 20120730
  2. LUMIGAN [Concomitant]
     Dosage: 0.01 %, UNK
  3. METHOTREXATE [Concomitant]
     Dosage: 2.5 MG, TABLET 5 WEEKLY
     Route: 048
  4. FOLIC ACID [Concomitant]
     Dosage: 1 MG, BID
     Route: 048
  5. FERROUS SULFATE [Concomitant]
     Dosage: 27 MG, TAB 65MG QD

REACTIONS (2)
  - Injection site erythema [Not Recovered/Not Resolved]
  - Injection site bruising [Not Recovered/Not Resolved]
